FAERS Safety Report 4261871-5 (Version None)
Quarter: 2004Q1

REPORT INFORMATION
  Report Type: 
  Country: None (occurrence: None)
  Receive Date: 20040102
  Receipt Date: 20031010
  Transmission Date: 20041129
  Serious: Yes (Other)
  Sender: FDA-Public Use
  Company Number: PHEH2003US09366

PATIENT
  Age: 79 Year
  Sex: Female

DRUGS (6)
  1. STARLIX [Suspect]
     Indication: DIABETES MELLITUS
     Dosage: 120 MG, QD
     Route: 048
     Dates: start: 20030601
  2. AVANDIA [Suspect]
     Indication: DIABETES MELLITUS
     Dosage: 4 MG, QD
     Route: 048
     Dates: start: 20000101, end: 20031010
  3. DIGOXIN [Concomitant]
     Indication: ARRHYTHMIA
     Route: 048
  4. PEPCID [Concomitant]
     Indication: GASTROOESOPHAGEAL REFLUX DISEASE
     Dosage: 20 MG, BID
     Route: 048
  5. CITRUCEL [Concomitant]
     Indication: DIVERTICULUM
  6. ASPIRIN [Concomitant]
     Dosage: 81 MG, QD
     Route: 048

REACTIONS (9)
  - ARTERIAL OCCLUSIVE DISEASE [None]
  - CARDIAC DISORDER [None]
  - CARDIAC FAILURE CONGESTIVE [None]
  - CATHETERISATION CARDIAC ABNORMAL [None]
  - CONSTIPATION [None]
  - COUGH [None]
  - DYSPNOEA [None]
  - MITRAL VALVE DISEASE [None]
  - OEDEMA PERIPHERAL [None]
